FAERS Safety Report 4407035-3 (Version None)
Quarter: 2004Q3

REPORT INFORMATION
  Report Type: 
  Country: None (occurrence: None)
  Receive Date: 20040715
  Receipt Date: 20040702
  Transmission Date: 20050211
  Serious: Yes (Hospitalization)
  Sender: FDA-Public Use
  Company Number: CL-JNJFOC-20040502246

PATIENT
  Age: 46 Year
  Sex: Female
  Weight: 54 kg

DRUGS (6)
  1. INFLIXIMAB (INFLIXIMAB, RECOMBINANT) LYOPHILIZED POWDER [Suspect]
     Indication: CROHN'S DISEASE
     Dosage: 5 MG/KG, INTRAVENOUS
     Route: 042
     Dates: start: 20040101
  2. INFLIXIMAB (INFLIXIMAB, RECOMBINANT) LYOPHILIZED POWDER [Suspect]
     Indication: CROHN'S DISEASE
     Dosage: 5 MG/KG, INTRAVENOUS
     Route: 042
     Dates: start: 20040201
  3. FLAGYL [Suspect]
  4. SALOFALK (AMINOSALICYLIC ACID) [Concomitant]
  5. STEROIDES (CORTICOSTEROID NOS) [Concomitant]
  6. CEPHALOSPORINE (CEPHALOSPORIN C) [Concomitant]

REACTIONS (2)
  - PARAESTHESIA [None]
  - SENSORIMOTOR DISORDER [None]
